FAERS Safety Report 20141875 (Version 2)
Quarter: 2021Q4

REPORT INFORMATION
  Report Type: Other
  Country: US (occurrence: None)
  Receive Date: 20211202
  Receipt Date: 20211221
  Transmission Date: 20220303
  Serious: Yes (Other)
  Sender: FDA-Public Use
  Company Number: US-ROCHE-2963820

PATIENT
  Age: 61 Year
  Sex: Female

DRUGS (20)
  1. OCREVUS [Suspect]
     Active Substance: OCRELIZUMAB
     Indication: Primary progressive multiple sclerosis
     Route: 042
     Dates: start: 20210521
  2. OCREVUS [Suspect]
     Active Substance: OCRELIZUMAB
     Route: 042
     Dates: start: 201804
  3. VALIUM [Suspect]
     Active Substance: DIAZEPAM
     Indication: Muscle spasms
     Dosage: ONE EVERY DAY AS REQUIRED
     Route: 048
  4. VALIUM [Suspect]
     Active Substance: DIAZEPAM
     Indication: Anxiety
  5. VANCOMYCIN [Concomitant]
     Active Substance: VANCOMYCIN
     Dates: start: 20211111
  6. ACETAMINOPHEN [Concomitant]
     Active Substance: ACETAMINOPHEN
     Route: 048
  7. CETIRIZINE [Concomitant]
     Active Substance: CETIRIZINE HYDROCHLORIDE
     Route: 048
  8. METHYLPREDNISOLONE SODIUM SUCCINATE [Concomitant]
     Active Substance: METHYLPREDNISOLONE SODIUM SUCCINATE
     Route: 042
  9. SODIUM CHLORIDE [Concomitant]
     Active Substance: SODIUM CHLORIDE
  10. DIPHENHYDRAMINE [Concomitant]
     Active Substance: DIPHENHYDRAMINE
  11. EPINEPHRINE [Concomitant]
     Active Substance: EPINEPHRINE
     Route: 030
  12. HYDROCORTISONE SODIUM SUCCINATE [Concomitant]
     Active Substance: HYDROCORTISONE SODIUM SUCCINATE
     Route: 042
  13. ALBUTEROL [Concomitant]
     Active Substance: ALBUTEROL
  14. GEMTESA [Concomitant]
     Active Substance: VIBEGRON
     Indication: Neurogenic bladder
     Route: 048
  15. PROZAC [Concomitant]
     Active Substance: FLUOXETINE HYDROCHLORIDE
     Indication: Anxiety
     Route: 048
     Dates: start: 202110, end: 202110
  16. PROZAC [Concomitant]
     Active Substance: FLUOXETINE HYDROCHLORIDE
     Indication: Depression
  17. CARBAMAZEPINE [Concomitant]
     Active Substance: CARBAMAZEPINE
     Indication: Trigeminal neuralgia
     Route: 048
     Dates: start: 2016
  18. KEFLEX [Concomitant]
     Active Substance: CEPHALEXIN
     Indication: Cystitis
     Route: 048
  19. RESTASIS [Concomitant]
     Active Substance: CYCLOSPORINE
     Route: 047
  20. BACLOFEN [Concomitant]
     Active Substance: BACLOFEN
     Indication: Muscle spasms
     Route: 037

REACTIONS (4)
  - Osteomyelitis [Not Recovered/Not Resolved]
  - Ulcer [Recovered/Resolved]
  - Wound [Not Recovered/Not Resolved]
  - Insomnia [Not Recovered/Not Resolved]

NARRATIVE: CASE EVENT DATE: 20211001
